FAERS Safety Report 6191701-6 (Version None)
Quarter: 2009Q2

REPORT INFORMATION
  Report Type: 
  Country: None (occurrence: None)
  Receive Date: 20090515
  Receipt Date: 20090504
  Transmission Date: 20091009
  Serious: Yes (Hospitalization, Disabling)
  Sender: FDA-Public Use
  Company Number: PL-AMGEN-US346276

PATIENT
  Sex: Female
  Weight: 94 kg

DRUGS (5)
  1. ENBREL [Suspect]
     Indication: RHEUMATOID ARTHRITIS
     Route: 058
     Dates: start: 20080924, end: 20090114
  2. PRESTARIUM [Concomitant]
     Indication: HYPERTENSION
     Dosage: 5 MG TABLET ^OAD^
     Route: 048
  3. SULFASALAZINE [Concomitant]
     Indication: RHEUMATOID ARTHRITIS
     Dosage: 500 MG TABLET ^BID^
     Route: 048
  4. METYPRED [Concomitant]
     Indication: RHEUMATOID ARTHRITIS
     Dosage: 8 MG TABLET ^OAD^
     Route: 048
  5. BISOCARD [Concomitant]
     Indication: HYPERTENSION
     Dosage: 5 MG TABLET ^OAD^
     Route: 048

REACTIONS (2)
  - PNEUMONIA [None]
  - PULMONARY TUBERCULOSIS [None]
